FAERS Safety Report 5671210-0 (Version None)
Quarter: 2008Q1

REPORT INFORMATION
  Report Type: 
  Country: None (occurrence: None)
  Receive Date: 20080318
  Receipt Date: 20080307
  Transmission Date: 20080703
  Serious: Yes (Other)
  Sender: FDA-Public Use
  Company Number: PHHY2008JP02329

PATIENT
  Age: 28 Year
  Sex: Male

DRUGS (3)
  1. RITALIN [Suspect]
     Indication: AFFECTIVE DISORDER
     Dosage: 30 MG/DAY
     Route: 048
  2. CLOMIPRAMINE HCL [Concomitant]
     Dosage: 150 MG/DAY
  3. BROMAZEPAM [Concomitant]
     Dosage: 15 MG/DAY

REACTIONS (8)
  - BORDERLINE PERSONALITY DISORDER [None]
  - DRUG DEPENDENCE [None]
  - DYSLOGIA [None]
  - ELEVATED MOOD [None]
  - EUPHORIC MOOD [None]
  - HYPERSOMNIA [None]
  - PHOBIA [None]
  - WRONG TECHNIQUE IN DRUG USAGE PROCESS [None]
